FAERS Safety Report 5219997-5 (Version None)
Quarter: 2007Q1

REPORT INFORMATION
  Report Type: 
  Country: None (occurrence: None)
  Receive Date: 20070125
  Receipt Date: 20070119
  Transmission Date: 20070707
  Serious: Yes (Other)
  Sender: FDA-Public Use
  Company Number: US-PFIZER INC-2007005729

PATIENT
  Age: 50 Year
  Sex: Male
  Weight: 81.6 kg

DRUGS (7)
  1. XANAX [Suspect]
     Indication: DEPRESSION
  2. ALL OTHER THERAPEUTIC PRODUCTS [Concomitant]
  3. ALL OTHER THERAPEUTIC PRODUCTS [Concomitant]
  4. VALIUM [Concomitant]
  5. ALL OTHER THERAPEUTIC PRODUCTS [Concomitant]
  6. ZETIA [Concomitant]
  7. ALL OTHER THERAPEUTIC PRODUCTS [Concomitant]

REACTIONS (8)
  - BLOOD PRESSURE INCREASED [None]
  - BLOOD TRIGLYCERIDES ABNORMAL [None]
  - CONCUSSION [None]
  - FALL [None]
  - NERVE INJURY [None]
  - NERVOUSNESS [None]
  - TINNITUS [None]
  - WEIGHT DECREASED [None]
